FAERS Safety Report 6090653-7 (Version None)
Quarter: 2009Q1

REPORT INFORMATION
  Report Type: 
  Country: None (occurrence: None)
  Receive Date: 20090223
  Receipt Date: 20090215
  Transmission Date: 20090719
  Serious: Yes (Death, Hospitalization, Other)
  Sender: FDA-Public Use
  Company Number: 2009SP002820

PATIENT
  Age: 41 Year
  Sex: Male
  Weight: 77.2 kg

DRUGS (7)
  1. TEMOZOLOMIDE [Suspect]
     Indication: NEOPLASM MALIGNANT
     Dosage: 400 MG; QD; PO
     Route: 048
     Dates: start: 20081117, end: 20081121
  2. VELCADE [Suspect]
     Indication: NEOPLASM MALIGNANT
     Dosage: 2.65 MG; INBO
     Dates: start: 20081118, end: 20081128
  3. DEXAMETHASONE [Concomitant]
  4. METHADONE HCL [Concomitant]
  5. HYDROMORPHONE HCL [Concomitant]
  6. MIRALAX [Concomitant]
  7. SENNA [Concomitant]

REACTIONS (4)
  - CARDIO-RESPIRATORY ARREST [None]
  - CONFUSIONAL STATE [None]
  - DISEASE PROGRESSION [None]
  - DYSPNOEA [None]
